FAERS Safety Report 8785203 (Version 1)
Quarter: 2012Q4

REPORT INFORMATION
  Report Type: 
  Country: US (occurrence: US)
  Receive Date: 20120914
  Receipt Date: 20120914
  Transmission Date: 20130627
  Serious: No
  Sender: FDA-Public Use
  Company Number: US-JNJFOC-20120712004

PATIENT
  Sex: Male
  Weight: 102.06 kg

DRUGS (4)
  1. DURAGESIC [Suspect]
     Indication: PRODUCT USED FOR UNKNOWN INDICATION
     Route: 062
  2. DURAGESIC [Suspect]
     Indication: PAIN
     Route: 062
  3. DURAGESIC [Suspect]
     Indication: PAIN
     Route: 062
  4. DURAGESIC [Suspect]
     Indication: PRODUCT USED FOR UNKNOWN INDICATION
     Route: 062

REACTIONS (8)
  - Product quality issue [Unknown]
  - Product quality issue [Unknown]
  - Withdrawal syndrome [Not Recovered/Not Resolved]
  - Pain [Not Recovered/Not Resolved]
  - Hypersomnia [Not Recovered/Not Resolved]
  - Overdose [Recovered/Resolved]
  - Wrong technique in drug usage process [Unknown]
  - Incorrect drug administration rate [Unknown]
